FAERS Safety Report 9695103 (Version 5)
Quarter: 2014Q1

REPORT INFORMATION
  Report Type: Report from Study
  Country: DE (occurrence: DE)
  Receive Date: 20131119
  Receipt Date: 20140114
  Transmission Date: 20141002
  Serious: Yes (Hospitalization, Other)
  Sender: FDA-Public Use
  Company Number: PHHY2012DE101572

PATIENT
  Age: 13 Year
  Sex: Male
  Weight: 45.5 kg

DRUGS (24)
  1. ICL670A [Suspect]
     Indication: CONGENITAL APLASTIC ANAEMIA
     Dosage: 250 MG, DAILY
     Route: 048
     Dates: start: 20120329
  2. ICL670A [Suspect]
     Dosage: 500 MG, DAILY
     Route: 048
     Dates: start: 20120419, end: 20120613
  3. ICL670A [Suspect]
     Dosage: 1000 MG, DAILY
     Route: 048
     Dates: start: 20120614, end: 20120704
  4. ICL670A [Suspect]
     Dosage: 1500 MG, DAILY
     Route: 048
     Dates: start: 20120705, end: 20121220
  5. ICL670A [Suspect]
     Dosage: 1000 MG, DAILY
     Route: 048
     Dates: start: 20121221
  6. ICL670A [Suspect]
     Dosage: 500 MG, TID
     Route: 048
     Dates: start: 20120329
  7. IBUPROFEN [Concomitant]
     Dosage: 10 ML, PER DAY
     Dates: start: 20120307
  8. ALENDRONIC ACID [Concomitant]
     Indication: OSTEOPENIA
     Dosage: 70 MG, PER ONCE A WEEK
     Route: 048
     Dates: start: 20080722, end: 20121218
  9. CALCIUM D SANDOZ [Concomitant]
     Indication: OSTEOPENIA
     Dosage: 400 MG, PER DAY
     Route: 048
     Dates: start: 20080722, end: 20121218
  10. CEFOTAXIM [Concomitant]
     Dosage: 4.5 G,DAILY
     Dates: start: 20120511, end: 20120521
  11. CEFOTAXIM [Concomitant]
     Dosage: 4.5 G PER DAY
     Dates: start: 20120615, end: 20120617
  12. GENTAMYCIN [Concomitant]
     Dosage: 300 MG PER DAY
     Dates: start: 20120511, end: 20120512
  13. FORTUM [Concomitant]
     Dosage: 6 G, DAILY
     Dates: start: 20120510, end: 20120511
  14. PERFALGAN [Concomitant]
     Dosage: 1500 MG PER DAY
     Dates: start: 20120510, end: 20120511
  15. CLEXANE [Concomitant]
     Dosage: 20 MG, PER DAY
     Dates: start: 20120613, end: 20120621
  16. PERENTEROL [Concomitant]
     Dosage: 2 DF, PER DAY
     Dates: start: 20120905
  17. PAIDOFLOR [Concomitant]
     Dosage: 3 DF(3 CHEWING TABLETS/D WHEN NEEDED), UNK
  18. PAIDOFLOR [Concomitant]
     Dosage: 3 DF(3 CHEWING TABLETS/D)
  19. PEROCUR FORTE [Concomitant]
     Dosage: 250 MG, PER DAY
  20. CEFTAZIDIM [Concomitant]
     Dosage: UNK UKN, UNK
     Dates: start: 20120510, end: 20120512
  21. ENOXAPARIN [Concomitant]
     Dosage: UNK UKN, UNK
     Dates: start: 20120613
  22. PERENTEROL                              /GFR/ [Concomitant]
     Dosage: UNK UKN, UNK
     Dates: start: 20120905
  23. BISPHOSPHONATES [Concomitant]
     Dosage: UNK UKN, UNK
  24. ANTACIDS [Concomitant]
     Dosage: UNK UKN, UNK

REACTIONS (7)
  - Colitis [Recovered/Resolved]
  - Haemorrhage [Recovered/Resolved]
  - Epiphysiolysis [Not Recovered/Not Resolved]
  - Gastroenteritis salmonella [Recovered/Resolved]
  - Salmonella sepsis [Recovered/Resolved]
  - Diarrhoea [Unknown]
  - Dyspepsia [Unknown]
